FAERS Safety Report 19710934 (Version 1)
Quarter: 2021Q3

REPORT INFORMATION
  Report Type: Spontaneous
  Country: GB (occurrence: GB)
  Receive Date: 20210816
  Receipt Date: 20210816
  Transmission Date: 20211014
  Serious: Yes (Other)
  Sender: FDA-Public Use
  Company Number: GB-MYLANLABS-2021M1050315

PATIENT
  Age: 33 Year
  Sex: Female
  Weight: 90 kg

DRUGS (7)
  1. DOXYCYCLINE. [Suspect]
     Active Substance: DOXYCYCLINE
     Dosage: 100 MILLIGRAM, QD (TAKE TWO CAPSULES NOW THEN)
     Route: 048
     Dates: start: 20210720, end: 20210726
  2. AVAMYS [Concomitant]
     Active Substance: FLUTICASONE FUROATE
     Dosage: 4 GTT DROPS, QD (EACH NOSTRIL)
     Dates: start: 20210715
  3. AMITRIPTYLINE HYDROCHLORIDE. [Concomitant]
     Active Substance: AMITRIPTYLINE HYDROCHLORIDE
     Dosage: 1 DOSAGE FORM, QD (AT NIGHT)
     Dates: start: 20210506, end: 20210603
  4. TOPIRAMATE. [Concomitant]
     Active Substance: TOPIRAMATE
     Dosage: UNK UNK, BID (TWICE A DAY)
     Dates: start: 20201030
  5. DOXYCYCLINE. [Suspect]
     Active Substance: DOXYCYCLINE
     Indication: PRODUCT USED FOR UNKNOWN INDICATION
     Dosage: 200 MILLIGRAM, QD (TAKE TWO CAPSULES NOW THEN )
     Route: 048
     Dates: start: 20210719, end: 20210720
  6. SALBUTAMOL [Concomitant]
     Active Substance: ALBUTEROL
     Dosage: 2 DOSAGE FORM, PRN (FOUR TIMES A DAY)
     Route: 055
     Dates: start: 20210805
  7. NITROFURANTOIN. [Concomitant]
     Active Substance: NITROFURANTOIN
     Dosage: 1 DOSAGE FORM, BID
     Route: 048
     Dates: start: 20210511, end: 20210514

REACTIONS (2)
  - Vomiting [Unknown]
  - Syncope [Unknown]
